FAERS Safety Report 10040454 (Version 1)
Quarter: 2014Q1

REPORT INFORMATION
  Report Type: Report from Study
  Country: DE (occurrence: DE)
  Receive Date: 20140327
  Receipt Date: 20140327
  Transmission Date: 20141002
  Serious: Yes (Hospitalization)
  Sender: FDA-Public Use
  Company Number: PHHY2014DE034584

PATIENT
  Age: 60 Year
  Sex: Female
  Weight: 63.3 kg

DRUGS (17)
  1. IRINOTECAN [Suspect]
     Indication: COLORECTAL CANCER METASTATIC
     Dosage: 180 MG/M2, EVERY 2 WEEKS
     Route: 042
     Dates: start: 20131021
  2. IRINOTECAN [Suspect]
     Dosage: 316.8 MG
     Route: 042
     Dates: start: 20140131
  3. CALCIUM FOLINATE [Suspect]
     Indication: COLORECTAL CANCER METASTATIC
     Dosage: 400 MG/M2, EVERY 2 WEEKS
     Route: 042
     Dates: start: 20131021
  4. CALCIUM FOLINATE [Suspect]
     Dosage: 704 MG
     Route: 042
     Dates: start: 20140131
  5. FLUOROURACIL [Suspect]
     Indication: COLORECTAL CANCER METASTATIC
     Dosage: 400 MG/M2, EVERY 2 WEEKS
     Route: 040
     Dates: start: 20131021
  6. FLUOROURACIL [Suspect]
     Dosage: 2400 MG/M2, EVERY 2 WEEKS
     Route: 042
     Dates: start: 20131021
  7. FLUOROURACIL [Suspect]
     Dosage: 400 MG/M2, EVERY 2 WEEKS
     Route: 042
     Dates: start: 20140131
  8. FLUOROURACIL [Suspect]
     Dosage: 2400 MG/M2, EVERY 2 WEEKS
     Route: 042
     Dates: start: 20140131
  9. BISOPROLOL [Concomitant]
     Indication: HYPERTENSION
     Dosage: 2.5 MG
     Route: 048
  10. CAPTOPRIL [Concomitant]
     Indication: HYPERTENSION
     Dosage: 25 MG
     Route: 048
  11. DEXAMETHASON//DEXAMETHASONE [Concomitant]
     Indication: PREMEDICATION
     Dosage: 8 MG
     Route: 042
     Dates: start: 20131021
  12. ZOFRAN [Concomitant]
     Indication: PREMEDICATION
     Dosage: 8 MG
     Route: 042
     Dates: start: 20131021
  13. RANITIC [Concomitant]
     Indication: PREMEDICATION
     Dosage: 50 MG
     Route: 042
     Dates: start: 20131021
  14. TAVEGIL//CLEMASTINE FUMARATE [Concomitant]
     Indication: PREMEDICATION
     Dosage: 2 MG
     Route: 042
     Dates: start: 20131021
  15. PARACETAMOL [Concomitant]
     Indication: PREMEDICATION
     Dosage: 1 G
     Route: 048
     Dates: start: 20131021
  16. ZOLEDRONATE [Concomitant]
     Indication: METASTASES TO BONE
     Dosage: 4 MG
     Route: 042
     Dates: start: 20140102
  17. KALINOR [Concomitant]
     Indication: HYPOKALAEMIA
     Dosage: 1 DF
     Route: 048
     Dates: start: 20131104

REACTIONS (1)
  - Palmar-plantar erythrodysaesthesia syndrome [Recovered/Resolved]
